FAERS Safety Report 20813486 (Version 1)
Quarter: 2022Q2

REPORT INFORMATION
  Report Type: Spontaneous
  Country: US (occurrence: None)
  Receive Date: 20220510
  Receipt Date: 20220510
  Transmission Date: 20220721
  Serious: Yes (unspecified)
  Sender: FDA-Public Use
  Company Number: None

PATIENT
  Age: 59 Year
  Sex: Male

DRUGS (1)
  1. NIRMATRELVIR\RITONAVIR [Suspect]
     Active Substance: NIRMATRELVIR\RITONAVIR
     Indication: COVID-19
     Dates: start: 20220128, end: 20220203

REACTIONS (7)
  - Wheezing [None]
  - Vision blurred [None]
  - Respiratory depression [None]
  - Productive cough [None]
  - Dyspnoea [None]
  - Blood glucose increased [None]
  - Infection [None]

NARRATIVE: CASE EVENT DATE: 20220202
